FAERS Safety Report 4651988-5 (Version None)
Quarter: 2005Q2

REPORT INFORMATION
  Report Type: 
  Country: None (occurrence: None)
  Receive Date: 20050404
  Receipt Date: 20050128
  Transmission Date: 20051028
  Serious: Yes (Hospitalization)
  Sender: FDA-Public Use
  Company Number: US_0501111594

PATIENT
  Age: 25 Year
  Sex: Female
  Weight: 55 kg

DRUGS (2)
  1. CYMBALTA [Suspect]
     Indication: FIBROMYALGIA
     Dosage: 30 MG/1 DAY
     Dates: start: 20050106, end: 20050125
  2. PROZAC [Suspect]
     Dosage: 60 MG DAY
     Dates: start: 20031201, end: 20031201

REACTIONS (5)
  - ABNORMAL BEHAVIOUR [None]
  - INSOMNIA [None]
  - INTENTIONAL SELF-INJURY [None]
  - SUICIDAL IDEATION [None]
  - WEIGHT DECREASED [None]
